FAERS Safety Report 18722380 (Version 1)
Quarter: 2021Q1

REPORT INFORMATION
  Report Type: Report from Study
  Country: US (occurrence: US)
  Receive Date: 20210111
  Receipt Date: 20210111
  Transmission Date: 20210419
  Serious: Yes (Death)
  Sender: FDA-Public Use
  Company Number: US-TAIHO ONCOLOGY  INC-EU-2021-00039

PATIENT
  Age: 46 Year
  Sex: Female

DRUGS (23)
  1. DAILY?VITE [Concomitant]
  2. SPIRONOLACTONE. [Concomitant]
     Active Substance: SPIRONOLACTONE
  3. BACLOFEN. [Concomitant]
     Active Substance: BACLOFEN
  4. FENTANYL. [Concomitant]
     Active Substance: FENTANYL
  5. GABAPENTIN. [Concomitant]
     Active Substance: GABAPENTIN
  6. OXYBUTYNIN. [Concomitant]
     Active Substance: OXYBUTYNIN CHLORIDE
  7. PROMETRIUM [Concomitant]
     Active Substance: PROGESTERONE
  8. CYCLOBENZAPRINE. [Concomitant]
     Active Substance: CYCLOBENZAPRINE
  9. MELATONIN [Concomitant]
     Active Substance: MELATONIN
  10. NORCO [Concomitant]
     Active Substance: ACETAMINOPHEN\HYDROCODONE BITARTRATE
  11. SERTRALINE [Concomitant]
     Active Substance: SERTRALINE HYDROCHLORIDE
  12. TRAZODONE [Concomitant]
     Active Substance: TRAZODONE HYDROCHLORIDE
  13. LONSURF [Suspect]
     Active Substance: TIPIRACIL HYDROCHLORIDE\TRIFLURIDINE
     Indication: RECTAL CANCER
     Dosage: CURRENT CYCLE UNKNOWN
     Route: 048
     Dates: start: 20201210
  14. LORATADINE. [Concomitant]
     Active Substance: LORATADINE
  15. VITAMIN B12 [Concomitant]
     Active Substance: CYANOCOBALAMIN
  16. VITAMIN D3 [Concomitant]
     Active Substance: CHOLECALCIFEROL
  17. FEROSUL [Concomitant]
     Active Substance: FERROUS SULFATE
  18. FISH OIL [Concomitant]
     Active Substance: FISH OIL
  19. DEXAMETHASONE. [Concomitant]
     Active Substance: DEXAMETHASONE
  20. EMLA [Concomitant]
     Active Substance: LIDOCAINE\PRILOCAINE
  21. FEXOFENADINE [Concomitant]
     Active Substance: FEXOFENADINE HYDROCHLORIDE
  22. ONDANSETRON [Concomitant]
     Active Substance: ONDANSETRON
  23. VITAMIN C [Concomitant]
     Active Substance: ASCORBIC ACID

REACTIONS (1)
  - Death [Fatal]

NARRATIVE: CASE EVENT DATE: 20201229
